FAERS Safety Report 19135183 (Version 1)
Quarter: 2021Q2

REPORT INFORMATION
  Report Type: Spontaneous
  Country: US (occurrence: US)
  Receive Date: 20210414
  Receipt Date: 20210414
  Transmission Date: 20210717
  Serious: Yes (Hospitalization)
  Sender: FDA-Public Use
  Company Number: US-ROCHE-2810903

PATIENT
  Age: 12 Year
  Sex: Female

DRUGS (1)
  1. EVRYSDI [Suspect]
     Active Substance: RISDIPLAM
     Indication: SPINAL MUSCULAR ATROPHY
     Dosage: EVRYSDI FOR ORAL SOLUTION
     Route: 065

REACTIONS (4)
  - Pyrexia [Unknown]
  - Gastrointestinal inflammation [Unknown]
  - Urinary tract infection [Unknown]
  - Abdominal pain [Unknown]
